FAERS Safety Report 8990338 (Version 2)
Quarter: 2013Q1

REPORT INFORMATION
  Report Type: Report from Study
  Country: US (occurrence: US)
  Receive Date: 20121228
  Receipt Date: 20130116
  Transmission Date: 20140127
  Serious: Yes (Hospitalization)
  Sender: FDA-Public Use
  Company Number: US-US-EMD SERONO, INC.-7183898

PATIENT
  Age: 53 Year
  Sex: Female

DRUGS (1)
  1. REBIF [Suspect]
     Indication: MULTIPLE SCLEROSIS
     Route: 058
     Dates: start: 20110922

REACTIONS (1)
  - Appendicectomy [Recovering/Resolving]
